FAERS Safety Report 16269121 (Version 1)
Quarter: 2019Q2

REPORT INFORMATION
  Report Type: Report from Study
  Country: US (occurrence: US)
  Receive Date: 20190503
  Receipt Date: 20190503
  Transmission Date: 20190711
  Serious: Yes (Other)
  Sender: FDA-Public Use
  Company Number: US-ROCHE-2311931

PATIENT
  Sex: Female

DRUGS (12)
  1. TRASTUZUMAB. [Concomitant]
     Active Substance: TRASTUZUMAB
     Route: 065
  2. PERTUZUMAB. [Concomitant]
     Active Substance: PERTUZUMAB
     Route: 065
  3. TRASTUZUMAB EMTANSINE [Suspect]
     Active Substance: ADO-TRASTUZUMAB EMTANSINE
     Indication: HER-2 POSITIVE BREAST CANCER
     Route: 065
  4. DOCETAXEL. [Concomitant]
     Active Substance: DOCETAXEL
  5. PACLITAXEL. [Concomitant]
     Active Substance: PACLITAXEL
  6. TUCATINIB [Concomitant]
     Active Substance: TUCATINIB
  7. CARBOPLATIN. [Concomitant]
     Active Substance: CARBOPLATIN
  8. EXEMESTANE. [Concomitant]
     Active Substance: EXEMESTANE
  9. CAPECITABINE. [Concomitant]
     Active Substance: CAPECITABINE
     Route: 048
  10. LAPATINIB [Concomitant]
     Active Substance: LAPATINIB
  11. DOXORUBICIN [Concomitant]
     Active Substance: DOXORUBICIN
  12. CYCLOPHOSPHAMIDE. [Concomitant]
     Active Substance: CYCLOPHOSPHAMIDE

REACTIONS (1)
  - Radiation necrosis [Unknown]
